FAERS Safety Report 7653977-5 (Version None)
Quarter: 2011Q3

REPORT INFORMATION
  Report Type: 
  Country: None (occurrence: None)
  Receive Date: 20110803
  Receipt Date: 20110729
  Transmission Date: 20111222
  Serious: Yes (Hospitalization)
  Sender: FDA-Public Use
  Company Number: DE-PFIZER INC-2011131069

PATIENT
  Age: 31 Year
  Sex: Male

DRUGS (3)
  1. LYRICA [Suspect]
     Indication: GRAND MAL CONVULSION
  2. ZOPLICONE [Concomitant]
     Dosage: 7.5 MG
  3. LYRICA [Suspect]
     Indication: WITHDRAWAL SYNDROME
     Dosage: 75 MG, 3X/DAY
     Dates: start: 20100801, end: 20101213

REACTIONS (2)
  - DRUG WITHDRAWAL SYNDROME [None]
  - DRUG DEPENDENCE [None]
